FAERS Safety Report 16229258 (Version 1)
Quarter: 2019Q2

REPORT INFORMATION
  Report Type: Spontaneous
  Country: US (occurrence: US)
  Receive Date: 20190319
  Receipt Date: 20190319
  Transmission Date: 20190711
  Serious: No
  Sender: FDA-Public Use
  Company Number: None

PATIENT
  Age: 38 Year
  Sex: Female

DRUGS (2)
  1. TOBRAMYCIN 300MG/5ML 20ML [Suspect]
     Active Substance: TOBRAMYCIN
     Indication: CYSTIC FIBROSIS
     Dosage: ?          OTHER DOSE:5ML (300MG);OTHER FREQUENCY:BID X28; OFF 28;OTHER ROUTE:IH?
  2. PULMOZYME [Suspect]
     Active Substance: DORNASE ALFA
     Indication: CYSTIC FIBROSIS
     Dosage: ?          OTHER DOSE:2.5 MG;OTHER ROUTE:IH?

REACTIONS (2)
  - Therapy cessation [None]
  - Dysphonia [None]

NARRATIVE: CASE EVENT DATE: 20190214
